FAERS Safety Report 23896829 (Version 1)
Quarter: 2024Q2

REPORT INFORMATION
  Report Type: Spontaneous
  Country: US (occurrence: US)
  Receive Date: 20240524
  Receipt Date: 20240524
  Transmission Date: 20240715
  Serious: Yes (Death, Hospitalization, Other)
  Sender: FDA-Public Use
  Company Number: US-SUN PHARMACEUTICAL INDUSTRIES LTD-2024R1-447646

PATIENT
  Age: 48 Year
  Sex: Male

DRUGS (2)
  1. BACLOFEN [Suspect]
     Active Substance: BACLOFEN
     Indication: Stiff person syndrome
     Dosage: 5 MILLIGRAM, DAILY
     Route: 065
  2. CYCLOBENZAPRINE [Suspect]
     Active Substance: CYCLOBENZAPRINE
     Indication: Stiff person syndrome
     Dosage: 10 MILLIGRAM, TID
     Route: 065

REACTIONS (5)
  - Brain injury [Fatal]
  - Acute respiratory failure [Unknown]
  - Cardiac arrest [Unknown]
  - Disease recurrence [Unknown]
  - Pulseless electrical activity [Unknown]
